FAERS Safety Report 10627260 (Version 3)
Quarter: 2015Q2

REPORT INFORMATION
  Report Type: Spontaneous
  Country: KR (occurrence: KR)
  Receive Date: 20141204
  Receipt Date: 20150616
  Transmission Date: 20150821
  Serious: Yes (Hospitalization)
  Sender: FDA-Public Use
  Company Number: KR-009507513-1412KOR001581

PATIENT
  Age: 41 Year
  Sex: Male
  Weight: 87 kg

DRUGS (22)
  1. MACPERAN [Concomitant]
     Indication: PROPHYLAXIS OF NAUSEA AND VOMITING
     Dosage: 30 MG, BID
     Route: 042
     Dates: start: 20141020, end: 20141020
  2. POTASSIUM CHLORIDE. [Concomitant]
     Active Substance: POTASSIUM CHLORIDE
     Indication: PREMEDICATION
     Dosage: 10 ML, BID
     Route: 042
     Dates: start: 20141017, end: 20141017
  3. RIBOFLAVIN (+) THIAMINE (+) URSODIOL [Concomitant]
     Indication: HEPATITIS B
     Dosage: 1 DF, TID
     Route: 048
     Dates: start: 20141017
  4. ADELAVIN (FLAVIN ADENINE DINUCLEOTIDE (+) LIVER EXTRACT) [Concomitant]
     Indication: NUTRITIONAL SUPPLEMENTATION
     Dosage: 2 AMP,QD
     Route: 042
     Dates: start: 20141015
  5. EMEND (FOSAPREPITANT DIMEGLUMINE) [Suspect]
     Active Substance: FOSAPREPITANT DIMEGLUMINE
     Indication: PROPHYLAXIS OF NAUSEA AND VOMITING
     Dosage: 150 MG, ONCE
     Route: 042
     Dates: start: 20141020, end: 20141020
  6. ALIMTA [Concomitant]
     Active Substance: PEMETREXED DISODIUM
     Indication: CHEMOTHERAPY
     Dosage: 1015MG, ONCE
     Route: 042
     Dates: start: 20141020, end: 20141020
  7. MACPERAN [Concomitant]
     Dosage: 0.5 AMP, TID
     Route: 042
     Dates: start: 20141101, end: 20141104
  8. KYTRIL [Concomitant]
     Active Substance: GRANISETRON HYDROCHLORIDE
     Indication: PREMEDICATION
     Dosage: 3 MG, ONCE. CONCENTRATION 3 MG/3ML
     Route: 042
     Dates: start: 20141020, end: 20141020
  9. FOLIC ACID. [Concomitant]
     Active Substance: FOLIC ACID
     Indication: NUTRITIONAL SUPPLEMENTATION
     Dosage: 1 DF, QD
     Route: 048
     Dates: start: 20141015
  10. BARACLUDE [Concomitant]
     Active Substance: ENTECAVIR
     Indication: HEPATITIS B
     Dosage: 0.5 DF, QD
     Route: 048
     Dates: start: 20140228
  11. CHLORPHENIRAMINE MALEATE. [Concomitant]
     Active Substance: CHLORPHENIRAMINE MALEATE
     Indication: PROPHYLAXIS
     Dosage: 4 MG, QD
     Route: 042
     Dates: start: 20141020, end: 20141020
  12. CISPLATIN. [Concomitant]
     Active Substance: CISPLATIN
     Indication: CHEMOTHERAPY
     Dosage: 121.8 MG, ONCE. CONCENTRATION 50 MG/100ML
     Route: 042
     Dates: start: 20141020, end: 20141020
  13. LASIX [Concomitant]
     Active Substance: FUROSEMIDE
     Indication: PREMEDICATION
     Dosage: 20 MG, BID CONCENTRATION 20 MG/2 ML
     Route: 042
     Dates: start: 20141017, end: 20141017
  14. MANNITOL. [Concomitant]
     Active Substance: MANNITOL
     Indication: PREMEDICATION
     Dosage: 100 ML, BID
     Route: 042
     Dates: start: 20141017, end: 20141017
  15. MULTIBLUE5 [Concomitant]
     Indication: NUTRITIONAL SUPPLEMENTATION
     Dosage: 1 VIAL, QD
     Route: 042
     Dates: start: 20141017
  16. SELENIOUS ACID. [Concomitant]
     Active Substance: SELENIOUS ACID
     Indication: NUTRITIONAL SUPPLEMENTATION
     Dosage: 1 VIAL, QD
     Route: 042
     Dates: start: 20141019
  17. PRIVITUSS [Concomitant]
     Indication: PROPHYLAXIS
     Dosage: 1 DF, TID
     Route: 048
     Dates: start: 20141017
  18. DEXAMETHASONE. [Concomitant]
     Active Substance: DEXAMETHASONE
     Indication: PREMEDICATION
     Dosage: 12 MG, ONCE. CONCENTRATION 5 MG/ML
     Route: 042
     Dates: start: 20141020, end: 20141020
  19. MASI [Concomitant]
     Indication: PREMEDICATION
     Dosage: 10 ML, BID
     Route: 042
     Dates: start: 20141017, end: 20141017
  20. MUTERAN [Concomitant]
     Indication: PROPHYLAXIS
     Dosage: 1 DF, TID
     Route: 048
     Dates: start: 20141017
  21. SMOFLIPID [Concomitant]
     Active Substance: FISH OIL\OLIVEOIL\SOYBEAN OIL\TRIGLYCERIDES,UNSPECIFIED LENGTH
     Indication: NUTRITIONAL SUPPLEMENTATION
     Dosage: 500 ML, QD
     Route: 042
     Dates: start: 20141017
  22. AMIRAL [Concomitant]
     Indication: NUTRITIONAL SUPPLEMENTATION
     Dosage: 500 ML, QD
     Route: 042
     Dates: start: 20141018

REACTIONS (1)
  - Cholangitis [Recovered/Resolved]

NARRATIVE: CASE EVENT DATE: 20141030
